FAERS Safety Report 4406051-5 (Version None)
Quarter: 2004Q3

REPORT INFORMATION
  Report Type: 
  Country: None (occurrence: None)
  Receive Date: 20040722
  Receipt Date: 20040718
  Transmission Date: 20050211
  Serious: Yes (Hospitalization)
  Sender: FDA-Public Use
  Company Number: 2004UW02347

PATIENT
  Age: 62 Year
  Sex: Male
  Weight: 82.5547 kg

DRUGS (2)
  1. CRESTOR [Suspect]
     Indication: HYPERCHOLESTEROLAEMIA
     Dosage: 10 MG QD PO
     Route: 048
  2. NEXIUM [Concomitant]

REACTIONS (6)
  - DYSPNOEA [None]
  - ENZYME ABNORMALITY [None]
  - IMPAIRED WORK ABILITY [None]
  - INFLAMMATION LOCALISED [None]
  - MYALGIA [None]
  - RENAL DISORDER [None]
